FAERS Safety Report 23294451 (Version 3)
Quarter: 2024Q1

REPORT INFORMATION
  Report Type: Spontaneous
  Country: US (occurrence: US)
  Receive Date: 20231213
  Receipt Date: 20240329
  Transmission Date: 20240410
  Serious: No
  Sender: FDA-Public Use
  Company Number: US-PFIZER INC-PV202300199263

PATIENT
  Age: 51 Year
  Sex: Male

DRUGS (3)
  1. INLYTA [Suspect]
     Active Substance: AXITINIB
     Dosage: 2 PILLS EVERY OTHER DAY AND SOMETIMES TAKES ITS DAILY
  2. INLYTA [Suspect]
     Active Substance: AXITINIB
     Dosage: 2 PILLS EVERY OTHER DAY AND SOMETIMES TAKES ITS DAILY
  3. KEYTRUDA [Concomitant]
     Active Substance: PEMBROLIZUMAB

REACTIONS (6)
  - Product dose omission issue [Unknown]
  - Intentional product misuse [Unknown]
  - Hypertension [Unknown]
  - Headache [Unknown]
  - Vision blurred [Unknown]
  - Nausea [Recovering/Resolving]
